FAERS Safety Report 21456364 (Version 2)
Quarter: 2022Q4

REPORT INFORMATION
  Report Type: Report from Study
  Country: US (occurrence: US)
  Receive Date: 20221014
  Receipt Date: 20221123
  Transmission Date: 20230113
  Serious: No
  Sender: FDA-Public Use
  Company Number: US-ABBVIE-4146642

PATIENT
  Age: 36 Year
  Sex: Female

DRUGS (2)
  1. RINVOQ [Suspect]
     Active Substance: UPADACITINIB
     Indication: Rheumatoid arthritis
     Dosage: 15 MG ER
     Route: 048
     Dates: start: 20220727, end: 20220911
  2. RINVOQ [Suspect]
     Active Substance: UPADACITINIB
     Indication: Rheumatoid arthritis
     Dosage: 15 MG
     Route: 048

REACTIONS (6)
  - Ear infection [Recovering/Resolving]
  - Musculoskeletal stiffness [Unknown]
  - Drug ineffective [Unknown]
  - Sinusitis [Recovering/Resolving]
  - Rheumatoid arthritis [Unknown]
  - Mobility decreased [Unknown]

NARRATIVE: CASE EVENT DATE: 20220911
